FAERS Safety Report 9665470 (Version 1)
Quarter: 2013Q4

REPORT INFORMATION
  Report Type: Spontaneous
  Country: US (occurrence: None)
  Receive Date: 20131031
  Receipt Date: 20131031
  Transmission Date: 20140711
  Serious: Yes (Hospitalization)
  Sender: FDA-Public Use
  Company Number: None

PATIENT
  Age: 63 Year
  Sex: Male
  Weight: 113 kg

DRUGS (3)
  1. ASPIRIN [Suspect]
     Indication: ANTICOAGULANT THERAPY
  2. CLOPIDOGREL [Suspect]
     Indication: ANTICOAGULANT THERAPY
  3. MUCOMYST [Concomitant]

REACTIONS (3)
  - Hemiparesis [None]
  - Aphasia [None]
  - Subdural haematoma [None]
